FAERS Safety Report 5894269-4 (Version None)
Quarter: 2008Q3

REPORT INFORMATION
  Report Type: 
  Country: None (occurrence: None)
  Receive Date: 20080923
  Receipt Date: 20080325
  Transmission Date: 20090109
  Serious: No
  Sender: FDA-Public Use
  Company Number: US-ASTRAZENECA-2008UW06084

PATIENT
  Age: 26 Year
  Sex: Female

DRUGS (5)
  1. SEROQUEL [Suspect]
     Dosage: 750 MG
     Route: 048
  2. LAMISIL [Concomitant]
  3. TYLENOL W/ CODEINE NO. 3 [Concomitant]
  4. LEVOTHYROXINE SODIUM [Concomitant]
  5. LEXAPRO [Concomitant]

REACTIONS (1)
  - VASCULITIS [None]
